FAERS Safety Report 9660941 (Version 2)
Quarter: 2016Q1

REPORT INFORMATION
  Report Type: Spontaneous
  Country: JP (occurrence: JP)
  Receive Date: 20131031
  Receipt Date: 20160302
  Transmission Date: 20160526
  Serious: Yes (Death, Hospitalization, Other)
  Sender: FDA-Public Use
  Company Number: JP-JHP PHARMACEUTICALS, LLC-JHP201300653

PATIENT

DRUGS (11)
  1. DANTRIUM [Suspect]
     Active Substance: DANTROLENE SODIUM
     Indication: MUSCLE SPASMS
     Dosage: 75 MG, / DAY
     Route: 065
  2. MIDAZOLAM [Concomitant]
     Active Substance: MIDAZOLAM\MIDAZOLAM HYDROCHLORIDE
     Indication: MUSCLE SPASMS
     Dosage: 5 MG, /HR
     Route: 051
  3. PENICILLIN G                       /00000903/ [Concomitant]
     Indication: PRODUCT USED FOR UNKNOWN INDICATION
     Dosage: 4000000 UNITS, QID
     Route: 065
  4. MAGNESIUM SULFATE. [Suspect]
     Active Substance: MAGNESIUM SULFATE
     Indication: BLOOD PRESSURE FLUCTUATION
     Dosage: 5 MEQ, /HR
     Route: 042
  5. ROCURONIUM [Suspect]
     Active Substance: ROCURONIUM BROMIDE
     Indication: MUSCLE SPASMS
     Dosage: 5 UG/KG/MIN, UNKNOWN
     Route: 051
  6. DIAZEPAM. [Concomitant]
     Active Substance: DIAZEPAM
     Indication: SEIZURE
     Dosage: UNK, UNKNOWN
     Route: 042
  7. MORPHINE [Concomitant]
     Active Substance: MORPHINE
     Indication: MUSCLE SPASMS
     Dosage: 2 MG, /HR
     Route: 051
  8. PROPOFOL. [Concomitant]
     Active Substance: PROPOFOL
     Indication: SEIZURE
     Dosage: UNK UNK, UNKNOWN
     Route: 042
  9. MAGNESIUM SULFATE. [Suspect]
     Active Substance: MAGNESIUM SULFATE
     Indication: HEART RATE IRREGULAR
  10. TETANUS IMMUNE GLOBULIN (HUMAN) [Concomitant]
     Active Substance: HUMAN CLOSTRIDIUM TETANI TOXOID IMMUNE GLOBULIN
     Indication: TETANUS
     Dosage: 500 UNITS, SINGLE
     Route: 065
  11. TETANUS IMMUNE GLOBULIN (HUMAN) [Concomitant]
     Active Substance: HUMAN CLOSTRIDIUM TETANI TOXOID IMMUNE GLOBULIN
     Dosage: 2750 UNITS, SINGLE
     Route: 065

REACTIONS (2)
  - Cheyne-Stokes respiration [Recovering/Resolving]
  - Product use issue [Unknown]
